FAERS Safety Report 23392187 (Version 1)
Quarter: 2024Q1

REPORT INFORMATION
  Report Type: Spontaneous
  Country: US (occurrence: US)
  Receive Date: 20240111
  Receipt Date: 20240111
  Transmission Date: 20240409
  Serious: Yes (Hospitalization, Other)
  Sender: FDA-Public Use
  Company Number: US-PFIZER INC-PV202400002771

PATIENT
  Age: 79 Year
  Sex: Female
  Weight: 60.9 kg

DRUGS (4)
  1. IBRANCE [Suspect]
     Active Substance: PALBOCICLIB
     Indication: Invasive ductal breast carcinoma
     Dosage: 125 MG, CYCLIC (1 TABLET DAILY FOR DAYS 1-21 AND OFF 7 DAYS FOR A 28 DAY CYCLE)
     Route: 048
  2. IBRANCE [Suspect]
     Active Substance: PALBOCICLIB
     Dosage: 125 MG, CYCLIC (1 TABLET DAILY FOR DAYS 1-21 AND OFF 7 DAYS FOR A 28 DAY CYCLE)
     Route: 048
     Dates: start: 20231115, end: 2023
  3. ARIMIDEX [Suspect]
     Active Substance: ANASTROZOLE
     Indication: Invasive ductal breast carcinoma
     Dosage: UNK
     Dates: start: 20230720, end: 2023
  4. ARIMIDEX [Suspect]
     Active Substance: ANASTROZOLE
     Dosage: UNK
     Dates: start: 20231115

REACTIONS (4)
  - Appendicitis [Unknown]
  - Stomatitis [Unknown]
  - Vulvovaginal discomfort [Unknown]
  - Rash [Unknown]
